FAERS Safety Report 5961938-7 (Version None)
Quarter: 2008Q4

REPORT INFORMATION
  Report Type: 
  Country: None (occurrence: None)
  Receive Date: 20081121
  Receipt Date: 20081114
  Transmission Date: 20090506
  Serious: Yes (Death, Hospitalization)
  Sender: FDA-Public Use
  Company Number: US-AMGEN-US319081

PATIENT
  Sex: Male

DRUGS (5)
  1. NPLATE [Suspect]
     Indication: IDIOPATHIC THROMBOCYTOPENIC PURPURA
     Dates: start: 20080929, end: 20080929
  2. PREDNISONE TAB [Concomitant]
  3. METOPROLOL [Concomitant]
  4. PANTOPRAZOLE SODIUM [Concomitant]
  5. DANAZOL [Concomitant]

REACTIONS (6)
  - ABDOMINAL PAIN UPPER [None]
  - ANEURYSM RUPTURED [None]
  - CONTUSION [None]
  - DIARRHOEA [None]
  - FALL [None]
  - OEDEMA PERIPHERAL [None]
